FAERS Safety Report 9833518 (Version 7)
Quarter: 2018Q2

REPORT INFORMATION
  Report Type: Report from Study
  Country: BR (occurrence: BR)
  Receive Date: 20140122
  Receipt Date: 20180516
  Transmission Date: 20180711
  Serious: Yes (Hospitalization, Other)
  Sender: FDA-Public Use
  Company Number: BR-ROCHE-1336751

PATIENT
  Age: 31 Year
  Sex: Female
  Weight: 90 kg

DRUGS (8)
  1. ACTEMRA [Suspect]
     Active Substance: TOCILIZUMAB
     Indication: RHEUMATOID ARTHRITIS
     Dosage: LATEST INFUSION PRIOR TO HEMORRHOID WAS 19/DEC/2013; LATEST INFUSION PRIOR TO EYE INFECTION WAS 11/M
     Route: 042
     Dates: start: 20131109
  2. LOSARTAN. [Concomitant]
     Active Substance: LOSARTAN
  3. CITALOPRAM [Concomitant]
     Active Substance: CITALOPRAM HYDROBROMIDE
  4. OXYCONTIN [Concomitant]
     Active Substance: OXYCODONE HYDROCHLORIDE
     Indication: PAIN
  5. ATENOLOL. [Concomitant]
     Active Substance: ATENOLOL
  6. TRAMADOL. [Concomitant]
     Active Substance: TRAMADOL
  7. RITUXIMAB. [Suspect]
     Active Substance: RITUXIMAB
     Indication: FIBROMYALGIA
     Route: 065
     Dates: start: 20170724
  8. FLUOXETINE [Concomitant]
     Active Substance: FLUOXETINE HYDROCHLORIDE

REACTIONS (15)
  - Anxiety [Not Recovered/Not Resolved]
  - Immunodeficiency [Unknown]
  - Pneumonia [Recovering/Resolving]
  - Arrhythmia [Unknown]
  - Hypertension [Unknown]
  - Fibromyalgia [Unknown]
  - Agitation [Not Recovered/Not Resolved]
  - Eye infection [Not Recovered/Not Resolved]
  - Dyspnoea [Unknown]
  - Off label use [Unknown]
  - Influenza [Unknown]
  - Haemorrhoids [Not Recovered/Not Resolved]
  - Intentional product use issue [Unknown]
  - Irritability [Not Recovered/Not Resolved]
  - Hypersensitivity [Unknown]

NARRATIVE: CASE EVENT DATE: 20140418
